FAERS Safety Report 18651329 (Version 9)
Quarter: 2022Q2

REPORT INFORMATION
  Report Type: Report from Study
  Country: US (occurrence: None)
  Receive Date: 20201223
  Receipt Date: 20220512
  Transmission Date: 20220721
  Serious: Yes (Death, Hospitalization)
  Sender: FDA-Public Use
  Company Number: US-ROCHE-2714696

PATIENT
  Age: 45 Year
  Sex: Female
  Weight: 113.9 kg

DRUGS (18)
  1. ATEZOLIZUMAB [Suspect]
     Active Substance: ATEZOLIZUMAB
     Indication: Cervix carcinoma
     Route: 041
     Dates: start: 20201027, end: 20201027
  2. ELIQUIS [Concomitant]
     Active Substance: APIXABAN
     Dates: start: 20190918
  3. LEXAPRO [Concomitant]
     Active Substance: ESCITALOPRAM OXALATE
  4. ANALPRAM-HC [Concomitant]
  5. SYNTHROID [Concomitant]
     Active Substance: LEVOTHYROXINE SODIUM
  6. ATIVAN [Concomitant]
     Active Substance: LORAZEPAM
  7. METOPROLOL [Concomitant]
     Active Substance: METOPROLOL
  8. PRILOSEC [Concomitant]
     Active Substance: OMEPRAZOLE MAGNESIUM
  9. ZOFRAN [Concomitant]
     Active Substance: ONDANSETRON HYDROCHLORIDE
  10. ROXICODONE [Concomitant]
     Active Substance: OXYCODONE HYDROCHLORIDE
  11. COMPAZINE [Concomitant]
     Active Substance: PROCHLORPERAZINE MALEATE
  12. TYLENOL [Concomitant]
     Active Substance: ACETAMINOPHEN
  13. LIDOCAINE [Concomitant]
     Active Substance: LIDOCAINE
  14. EMLA [Concomitant]
     Active Substance: LIDOCAINE\PRILOCAINE
  15. ZYPREXA [Concomitant]
     Active Substance: OLANZAPINE
  16. POTASSIUM CHLORIDE [Concomitant]
     Active Substance: POTASSIUM CHLORIDE
  17. SENNA S [Concomitant]
     Active Substance: DOCUSATE SODIUM\SENNA LEAF
     Dates: start: 20190128
  18. ERGOCALCIFEROL [Concomitant]
     Active Substance: ERGOCALCIFEROL

REACTIONS (2)
  - Immune-mediated myositis [Fatal]
  - Clostridium difficile infection [Recovered/Resolved]

NARRATIVE: CASE EVENT DATE: 20201103
